FAERS Safety Report 4439613-X (Version None)
Quarter: 2004Q3

REPORT INFORMATION
  Report Type: 
  Country: None (occurrence: None)
  Receive Date: 20040830
  Receipt Date: 20040816
  Transmission Date: 20050211
  Serious: Yes (Hospitalization)
  Sender: FDA-Public Use
  Company Number: F03200400087

PATIENT
  Age: 42 Year
  Sex: Female
  Weight: 83.6 kg

DRUGS (6)
  1. OXALIPLATIN - SOLUTION - UNIT DOSE: UNKNOWN [Suspect]
     Indication: NON-HODGKIN'S LYMPHOMA RECURRENT
     Dosage: INTRAVENOUS - NOS
     Route: 042
     Dates: start: 20040805, end: 20040805
  2. OXALIPLATIN - SOLUTION - UNIT DOSE: UNKNOWN [Suspect]
     Indication: NON-HODGKIN'S LYMPHOMA REFRACTORY
     Dosage: INTRAVENOUS - NOS
     Route: 042
     Dates: start: 20040805, end: 20040805
  3. GEMCITABINE - UNKNOWN - UNIT DOSE: UNKNOWN [Suspect]
     Indication: PRECURSOR B-LYMPHOBLASTIC LYMPHOMA
     Dates: start: 20040805, end: 20040805
  4. RITUXAN [Suspect]
     Indication: NON-HODGKIN'S LYMPHOMA RECURRENT
     Dates: start: 20040805, end: 20040805
  5. RITUXAN [Suspect]
     Indication: NON-HODGKIN'S LYMPHOMA REFRACTORY
     Dates: start: 20040805, end: 20040805
  6. PEGFILGRASTIM [Concomitant]

REACTIONS (3)
  - ACUTE LYMPHOCYTIC LEUKAEMIA [None]
  - PANCYTOPENIA [None]
  - PYREXIA [None]
